FAERS Safety Report 24010797 (Version 1)
Quarter: 2024Q2

REPORT INFORMATION
  Report Type: Report from Study
  Country: US (occurrence: US)
  Receive Date: 20240625
  Receipt Date: 20240625
  Transmission Date: 20240716
  Serious: Yes (Other)
  Sender: FDA-Public Use
  Company Number: US-ABBVIE-5809629

PATIENT
  Age: 86 Year
  Sex: Male

DRUGS (5)
  1. DUOPA [Suspect]
     Active Substance: CARBIDOPA\LEVODOPA
     Indication: Parkinson^s disease
     Route: 050
     Dates: start: 20200928
  2. DUOPA [Suspect]
     Active Substance: CARBIDOPA\LEVODOPA
  3. LIDOCAINE [Concomitant]
     Active Substance: LIDOCAINE
     Indication: Musculoskeletal chest pain
     Dosage: PATCH?FORM STRENGTH: 4 PERCENT
     Route: 061
  4. TYLENOL [Concomitant]
     Active Substance: ACETAMINOPHEN
     Indication: Musculoskeletal chest pain
  5. ADVIL [Suspect]
     Active Substance: IBUPROFEN\IBUPROFEN SODIUM
     Indication: Musculoskeletal chest pain
     Route: 065

REACTIONS (5)
  - Haemoglobin decreased [Unknown]
  - Stoma site haemorrhage [Recovered/Resolved]
  - Fall [Recovered/Resolved]
  - Rib fracture [Unknown]
  - Stoma site discharge [Unknown]

NARRATIVE: CASE EVENT DATE: 20240613
